FAERS Safety Report 21902839 (Version 1)
Quarter: 2023Q1

REPORT INFORMATION
  Report Type: Spontaneous
  Country: US (occurrence: None)
  Receive Date: 20230124
  Receipt Date: 20230124
  Transmission Date: 20230417
  Serious: Yes (Life-Threatening, Hospitalization, Other)
  Sender: FDA-Public Use
  Company Number: US-MLMSERVICE-20230105-4023868-1

PATIENT
  Age: 83 Year
  Sex: Male

DRUGS (5)
  1. CEFTRIAXONE [Suspect]
     Active Substance: CEFTRIAXONE
     Indication: Antibiotic prophylaxis
  2. LACTULOSE [Concomitant]
     Active Substance: LACTULOSE
     Indication: Hepatic encephalopathy prophylaxis
  3. VITAMIN K [Concomitant]
     Active Substance: PHYTONADIONE
     Route: 042
  4. RIFAXIMIN [Suspect]
     Active Substance: RIFAXIMIN
     Indication: Hepatic encephalopathy prophylaxis
  5. OCTREOTIDE [Concomitant]
     Active Substance: OCTREOTIDE
     Indication: Cirrhosis alcoholic

REACTIONS (2)
  - Factor V inhibition [Not Recovered/Not Resolved]
  - Gastrointestinal haemorrhage [Not Recovered/Not Resolved]
